FAERS Safety Report 4591757-8 (Version None)
Quarter: 2005Q1

REPORT INFORMATION
  Report Type: 
  Country: None (occurrence: None)
  Receive Date: 20050218
  Receipt Date: 20050211
  Transmission Date: 20050727
  Serious: Yes (Hospitalization)
  Sender: FDA-Public Use
  Company Number: KII-2005-0015141

PATIENT
  Age: 43 Year
  Sex: Male

DRUGS (2)
  1. OXYCONTIN [Suspect]
     Indication: PAIN
     Dosage: ORAL
     Route: 048
  2. ACETAMINOPHEN [Suspect]

REACTIONS (4)
  - BLOOD PRESSURE DIASTOLIC INCREASED [None]
  - DYSARTHRIA [None]
  - IMPAIRED DRIVING ABILITY [None]
  - MIOSIS [None]
